FAERS Safety Report 18431684 (Version 1)
Quarter: 2020Q4

REPORT INFORMATION
  Report Type: Report from Study
  Country: US (occurrence: US)
  Receive Date: 20201027
  Receipt Date: 20201027
  Transmission Date: 20210114
  Serious: Yes (Death, Life-Threatening, Other)
  Sender: FDA-Public Use
  Company Number: US-BAYER-2020-224889

PATIENT
  Age: 60 Year
  Sex: Female

DRUGS (2)
  1. ALCOHOL. [Suspect]
     Active Substance: ALCOHOL
  2. ASPIRIN. [Suspect]
     Active Substance: ASPIRIN

REACTIONS (14)
  - Toxicity to various agents [Fatal]
  - Bradycardia [None]
  - Respiratory depression [None]
  - Depressed level of consciousness [None]
  - Hepatotoxicity [None]
  - Coagulopathy [None]
  - Coma [None]
  - Tachycardia [None]
  - Electrocardiogram QRS complex prolonged [None]
  - Metabolic acidosis [None]
  - Hypotension [None]
  - Seizure [None]
  - Anion gap [None]
  - Rhabdomyolysis [None]
